FAERS Safety Report 4325276-0 (Version None)
Quarter: 2004Q1

REPORT INFORMATION
  Report Type: 
  Country: None (occurrence: None)
  Receive Date: 20040324
  Receipt Date: 20040310
  Transmission Date: 20041129
  Serious: Yes (Death, Hospitalization)
  Sender: FDA-Public Use
  Company Number: US_020785860

PATIENT
  Age: 56 Year
  Sex: Male
  Weight: 57 kg

DRUGS (3)
  1. GEMCITABINE HYDROCHLORIDE-IV (GEMCITABINE) [Suspect]
     Indication: NON-SMALL CELL LUNG CANCER
     Dosage: 1000 MG/M2/OTHER
     Dates: start: 20010227, end: 20010306
  2. NAVELBINE [Concomitant]
  3. .. [Suspect]

REACTIONS (5)
  - CONSTIPATION [None]
  - DISEASE PROGRESSION [None]
  - LUNG ADENOCARCINOMA STAGE III [None]
  - NON-SMALL CELL LUNG CANCER [None]
  - PNEUMONIA [None]
